FAERS Safety Report 5524125-2 (Version None)
Quarter: 2007Q4

REPORT INFORMATION
  Report Type: 
  Country: None (occurrence: None)
  Receive Date: 20071121
  Receipt Date: 20071119
  Transmission Date: 20080405
  Serious: Yes (Hospitalization)
  Sender: FDA-Public Use
  Company Number: US-MERCK-0707USA04705

PATIENT
  Age: 59 Year
  Sex: Female
  Weight: 55 kg

DRUGS (3)
  1. FOSAMAX [Suspect]
     Indication: OSTEOPOROSIS
     Route: 048
     Dates: start: 20040820, end: 20060109
  2. HYDROCHLOROTHIAZIDE AND LISINOPRIL [Concomitant]
     Indication: HYPERTENSION
     Route: 048
     Dates: start: 20000101
  3. PREVACID [Concomitant]
     Indication: GASTROOESOPHAGEAL REFLUX DISEASE
     Route: 048
     Dates: start: 20030101

REACTIONS (15)
  - ANAEMIA [None]
  - CYSTITIS [None]
  - CYSTOCELE [None]
  - DRUG INEFFECTIVE [None]
  - ENTEROCELE [None]
  - FALL [None]
  - GASTROINTESTINAL ULCER HAEMORRHAGE [None]
  - HUMERUS FRACTURE [None]
  - HYPOKALAEMIA [None]
  - HYPOMAGNESAEMIA [None]
  - OCCULT BLOOD POSITIVE [None]
  - OSTEOMYELITIS [None]
  - OSTEONECROSIS [None]
  - PEPTIC ULCER [None]
  - ROTATOR CUFF SYNDROME [None]
